FAERS Safety Report 21275385 (Version 1)
Quarter: 2022Q3

REPORT INFORMATION
  Report Type: Spontaneous
  Country: None (occurrence: DE)
  Receive Date: 20220831
  Receipt Date: 20220831
  Transmission Date: 20221027
  Serious: No
  Sender: FDA-Public Use
  Company Number: DE-B.Braun Medical Inc.-2132423

PATIENT
  Age: 31 Year
  Sex: Female
  Weight: 92 kg

DRUGS (9)
  1. ACETAMINOPHEN [Suspect]
     Active Substance: ACETAMINOPHEN
  2. APIXABAN [Concomitant]
     Active Substance: APIXABAN
  3. MAXIM (TRICLOSAN) [Concomitant]
     Active Substance: TRICLOSAN
  4. AMOXICILLIN\CLAVULANIC ACID [Concomitant]
     Active Substance: AMOXICILLIN\CLAVULANIC ACID
  5. OXYCODONE. [Suspect]
     Active Substance: OXYCODONE HYDROCHLORIDE
  6. DIENOGEST\ETHINYL ESTRADIOL [Suspect]
     Active Substance: DIENOGEST\ETHINYL ESTRADIOL
  7. DICLOFENAC [Suspect]
     Active Substance: DICLOFENAC
  8. PANTOPRAZOLE [Suspect]
     Active Substance: PANTOPRAZOLE
  9. PREGABALIN [Suspect]
     Active Substance: PREGABALIN

REACTIONS (6)
  - Pulmonary infarction [Recovering/Resolving]
  - Dyspnoea [Recovering/Resolving]
  - Chest pain [Recovering/Resolving]
  - Post procedural pulmonary embolism [Recovering/Resolving]
  - Pneumonia [Recovering/Resolving]
  - Thrombosis [Recovering/Resolving]
